FAERS Safety Report 5450730-8 (Version None)
Quarter: 2007Q3

REPORT INFORMATION
  Report Type: 
  Country: None (occurrence: None)
  Receive Date: 20070911
  Receipt Date: 20070903
  Transmission Date: 20080115
  Serious: Yes (Other)
  Sender: FDA-Public Use
  Company Number: T07-USA-03327-01

PATIENT
  Age: 29 Year
  Sex: Female
  Weight: 103 kg

DRUGS (3)
  1. CERVIDIL [Suspect]
     Indication: LABOUR INDUCTION
     Dosage: 10 MG ONCE VG
     Route: 067
     Dates: start: 20070717, end: 20070718
  2. INTRAVENOUS FLUIDS [Concomitant]
  3. OXYTOCIN [Concomitant]

REACTIONS (5)
  - ANAEMIA [None]
  - DRUG EXPOSURE DURING PREGNANCY [None]
  - LABORATORY TEST INTERFERENCE [None]
  - POSTPARTUM HAEMORRHAGE [None]
  - UTERINE ATONY [None]
